FAERS Safety Report 6004707-4 (Version None)
Quarter: 2008Q4

REPORT INFORMATION
  Report Type: 
  Country: None (occurrence: None)
  Receive Date: 20081216
  Receipt Date: 20080805
  Transmission Date: 20090506
  Serious: Yes (Other)
  Sender: FDA-Public Use
  Company Number: AU-B.I. PHARMACEUTICALS,INC./RIDGEFIELD-2008-BP-13027AU

PATIENT
  Age: 89 Year
  Sex: Female

DRUGS (6)
  1. MICARDIS [Suspect]
     Indication: ESSENTIAL HYPERTENSION
     Dosage: 40MG
     Route: 048
     Dates: end: 20080507
  2. ASPIRIN [Suspect]
     Indication: PERIPHERAL VASCULAR DISORDER
     Dosage: 100MG
     Route: 048
     Dates: start: 20080501, end: 20080508
  3. ESOMEPRAZOLE MAGNESIUM [Suspect]
     Dosage: 20MG
     Route: 048
     Dates: end: 20080507
  4. FLOXACILLIN SODIUM [Suspect]
     Indication: INFECTION
     Dosage: 4MG
     Route: 048
     Dates: start: 20080501, end: 20080507
  5. NIFEDIPINE [Suspect]
     Indication: ESSENTIAL HYPERTENSION
     Dosage: 2.5MG
     Route: 048
     Dates: start: 20080428, end: 20080508
  6. LACTULOSE [Concomitant]
     Indication: CONSTIPATION
     Dosage: 40MG
     Route: 048
     Dates: start: 20080429

REACTIONS (1)
  - TUBULOINTERSTITIAL NEPHRITIS [None]
